FAERS Safety Report 10286739 (Version 5)
Quarter: 2014Q3

REPORT INFORMATION
  Report Type: Spontaneous
  Country: TW (occurrence: None)
  Receive Date: 20140707
  Receipt Date: 20140922
  Transmission Date: 20150326
  Serious: Yes (Death, Hospitalization)
  Sender: FDA-Public Use
  Company Number: UNT-2014-002944

PATIENT
  Age: 34 Year
  Sex: Male

DRUGS (1)
  1. REMODULIN [Suspect]
     Active Substance: TREPROSTINIL
     Indication: PULMONARY ARTERIAL HYPERTENSION
     Dosage: 0.002 UG/KG, CONTINUING, SUBCUTANEOUS
     Route: 058
     Dates: start: 20140516

REACTIONS (4)
  - Pulmonary arterial hypertension [None]
  - Disease progression [None]
  - Right ventricular failure [None]
  - Pneumonia [None]

NARRATIVE: CASE EVENT DATE: 20140611
